FAERS Safety Report 10186802 (Version 2)
Quarter: 2014Q2

REPORT INFORMATION
  Report Type: Other
  Country: JP (occurrence: JP)
  Receive Date: 20140521
  Receipt Date: 20140617
  Transmission Date: 20141212
  Serious: Yes (Death, Life-Threatening, Other)
  Sender: FDA-Public Use
  Company Number: JP-BRISTOL-MYERS SQUIBB COMPANY-20797494

PATIENT
  Age: 68 Year
  Sex: Male

DRUGS (12)
  1. METGLUCO [Suspect]
     Indication: TYPE 2 DIABETES MELLITUS
     Route: 048
     Dates: start: 20060609
  2. DIART [Concomitant]
     Indication: HYPERTENSION
     Route: 048
  3. BABY ASPIRIN [Concomitant]
     Indication: MYOCARDIAL INFARCTION
     Route: 048
     Dates: start: 20010322
  4. ARTIST [Concomitant]
     Indication: CARDIAC FAILURE CONGESTIVE
     Route: 048
  5. NEXIUM [Concomitant]
     Indication: GASTROOESOPHAGEAL REFLUX DISEASE
     Route: 048
  6. ALDACTONE A [Concomitant]
     Indication: CARDIAC FAILURE CONGESTIVE
     Route: 048
  7. ALDACTONE A [Concomitant]
     Indication: HYPERTENSION
     Route: 048
  8. LIVALO [Concomitant]
     Indication: HYPERLIPIDAEMIA
     Route: 048
  9. MIGLITOL [Concomitant]
     Indication: DIABETES MELLITUS
     Route: 048
  10. LASIX [Concomitant]
     Indication: CARDIAC FAILURE CONGESTIVE
     Route: 048
  11. LASIX [Concomitant]
     Indication: HYPERTENSION
     Route: 048
  12. NESINA [Concomitant]
     Indication: DIABETES MELLITUS
     Route: 048

REACTIONS (2)
  - Cardiac failure [Fatal]
  - Lactic acidosis [Unknown]
